FAERS Safety Report 21784499 (Version 2)
Quarter: 2023Q1

REPORT INFORMATION
  Report Type: Spontaneous
  Country: US (occurrence: US)
  Receive Date: 20221227
  Receipt Date: 20230113
  Transmission Date: 20230417
  Serious: Yes (Hospitalization, Other)
  Sender: FDA-Public Use
  Company Number: US-PFIZER INC-202101096795

PATIENT
  Age: 73 Year
  Sex: Male
  Weight: 66.68 kg

DRUGS (7)
  1. VYNDAMAX [Suspect]
     Active Substance: TAFAMIDIS
     Indication: Renal amyloidosis
     Dosage: UNK
  2. VYNDAMAX [Suspect]
     Active Substance: TAFAMIDIS
     Indication: Amyloidosis
     Dosage: 61 MG, 1X/DAY
     Dates: start: 2020
  3. ALLOPURINOL [Concomitant]
     Active Substance: ALLOPURINOL
     Indication: Cardiac failure congestive
     Dosage: 100 MG, 1X/DAY
     Dates: end: 202212
  4. ASPIRIN [Concomitant]
     Active Substance: ASPIRIN
     Indication: Cardiac failure congestive
     Dosage: 81 MG, 1X/DAY
     Dates: end: 202212
  5. ATORVASTATINA CIPLA [Concomitant]
     Indication: Cardiac failure congestive
     Dosage: 40 MG, 1X/DAY (AT BEDTIME)
     Dates: end: 202212
  6. TORSEMIDE [Concomitant]
     Active Substance: TORSEMIDE
     Indication: Cardiac failure congestive
     Dosage: 20 MG, 1X/DAY
     Dates: end: 202212
  7. SPIRONOLACTONE ZYDUS [Concomitant]
     Indication: Cardiac failure congestive
     Dosage: 25 MG, 1X/DAY
     Dates: end: 202212

REACTIONS (6)
  - Cerebrovascular accident [Recovered/Resolved]
  - Dementia [Not Recovered/Not Resolved]
  - Hemiplegia [Recovering/Resolving]
  - Dysphagia [Not Recovered/Not Resolved]
  - COVID-19 [Recovered/Resolved]
  - Pain in extremity [Unknown]

NARRATIVE: CASE EVENT DATE: 20220502
